FAERS Safety Report 7440788-9 (Version None)
Quarter: 2011Q2

REPORT INFORMATION
  Report Type: 
  Country: None (occurrence: None)
  Receive Date: 20110427
  Receipt Date: 20110418
  Transmission Date: 20111010
  Serious: Yes (Hospitalization)
  Sender: FDA-Public Use
  Company Number: FR-ASTRAZENECA-2011SE22555

PATIENT
  Age: 80 Year
  Sex: Female

DRUGS (5)
  1. ZANIDIP [Concomitant]
  2. HYTACAND [Suspect]
     Route: 048
     Dates: end: 20080626
  3. CELIPROLOL [Concomitant]
  4. COLCHICINE [Concomitant]
     Indication: GOUT
     Dates: start: 20080526
  5. ALLOPURINOL [Suspect]
     Indication: GOUT
     Route: 048
     Dates: start: 20080526, end: 20080626

REACTIONS (2)
  - EOSINOPHILIA [None]
  - RASH MACULO-PAPULAR [None]
